FAERS Safety Report 22347023 (Version 1)
Quarter: 2023Q2

REPORT INFORMATION
  Report Type: Spontaneous
  Country: US (occurrence: US)
  Receive Date: 20230520
  Receipt Date: 20230520
  Transmission Date: 20230722
  Serious: Yes (Death, Other)
  Sender: FDA-Public Use
  Company Number: US-AMGEN-USASP2023083606

PATIENT

DRUGS (1)
  1. PEGFILGRASTIM [Suspect]
     Active Substance: PEGFILGRASTIM
     Indication: Prophylaxis
     Dosage: UNK
     Route: 065

REACTIONS (24)
  - Death [Fatal]
  - Sepsis [Fatal]
  - Cardiac arrest [Fatal]
  - Neutropenia [Unknown]
  - Fatigue [Unknown]
  - Decreased appetite [Unknown]
  - Dyspnoea [Unknown]
  - Anaemia [Unknown]
  - Hypoxia [Unknown]
  - Pathological fracture [Unknown]
  - Renal failure [Unknown]
  - Neoplasm progression [Unknown]
  - Blood creatinine increased [Unknown]
  - Hypotension [Unknown]
  - Nausea [Unknown]
  - Constipation [Unknown]
  - Rash [Unknown]
  - Nasal congestion [Unknown]
  - Oropharyngeal pain [Unknown]
  - Back pain [Unknown]
  - Pyrexia [Unknown]
  - Abdominal pain [Unknown]
  - Aspartate aminotransferase increased [Unknown]
  - Alanine aminotransferase increased [Unknown]
